FAERS Safety Report 4319891-8 (Version None)
Quarter: 2004Q1

REPORT INFORMATION
  Report Type: 
  Country: None (occurrence: None)
  Receive Date: 20040319
  Receipt Date: 20040311
  Transmission Date: 20041129
  Serious: Yes (Other)
  Sender: FDA-Public Use
  Company Number: PHEH2004US02950

PATIENT
  Age: 16 Year
  Sex: Female

DRUGS (3)
  1. TRILEPTAL [Suspect]
     Indication: EPILEPSY
     Route: 048
     Dates: start: 20040218
  2. TRILEPTAL [Suspect]
     Dosage: 300 MG, UNK
     Route: 048
     Dates: start: 20040303
  3. LAMICTAL ^BURROUGHS WELLCOME^ [Concomitant]

REACTIONS (1)
  - AGRANULOCYTOSIS [None]
